FAERS Safety Report 10142559 (Version 4)
Quarter: 2014Q2

REPORT INFORMATION
  Report Type: Report from Study
  Country: CA (occurrence: CA)
  Receive Date: 20140430
  Receipt Date: 20140619
  Transmission Date: 20141212
  Serious: Yes (Other)
  Sender: FDA-Public Use
  Company Number: CA-ROCHE-1343724

PATIENT
  Age: 60 Year
  Sex: Female
  Weight: 150 kg

DRUGS (8)
  1. ACTEMRA [Suspect]
     Indication: RHEUMATOID ARTHRITIS
     Route: 042
     Dates: start: 20140124, end: 20140224
  2. FLUOXETINE [Concomitant]
     Indication: DEPRESSION
  3. LOSARTAN [Concomitant]
     Indication: BLOOD PRESSURE
  4. OMEPRAZOLE [Concomitant]
  5. SINGULAR [Concomitant]
  6. METFORMIN [Concomitant]
  7. ADVAIR [Concomitant]
  8. VENTOLIN [Concomitant]
     Route: 065

REACTIONS (9)
  - Endometrial hypertrophy [Not Recovered/Not Resolved]
  - Cervix enlargement [Not Recovered/Not Resolved]
  - Vaginal haemorrhage [Not Recovered/Not Resolved]
  - Fatigue [Unknown]
  - Nausea [Unknown]
  - Fatigue [Unknown]
  - Pharyngitis [Unknown]
  - Ear infection [Unknown]
  - Stomatitis [Unknown]
